FAERS Safety Report 9613655 (Version 3)
Quarter: 2013Q4

REPORT INFORMATION
  Report Type: Report from Study
  Country: CA (occurrence: CA)
  Receive Date: 20131010
  Receipt Date: 20131122
  Transmission Date: 20140711
  Serious: Yes (Other)
  Sender: FDA-Public Use
  Company Number: CA-ABBVIE-13P-028-1099465-00

PATIENT
  Sex: Female
  Weight: 44.04 kg

DRUGS (5)
  1. HUMIRA [Suspect]
     Indication: CROHN^S DISEASE
     Route: 058
     Dates: start: 20130215, end: 20130827
  2. VITAMINS NOS [Suspect]
     Indication: PRODUCT USED FOR UNKNOWN INDICATION
  3. AZATHIOPRINE [Concomitant]
     Indication: CROHN^S DISEASE
     Route: 048
     Dates: start: 201210
  4. AZATHIOPRINE [Concomitant]
     Route: 048
     Dates: start: 201209, end: 201308
  5. OLESTYR [Concomitant]
     Indication: DIARRHOEA
     Route: 048
     Dates: start: 201212, end: 201308

REACTIONS (6)
  - Gastrointestinal disorder [Not Recovered/Not Resolved]
  - Malabsorption [Unknown]
  - Vomiting [Unknown]
  - Ileostomy closure [Unknown]
  - Postoperative hernia [Unknown]
  - Malabsorption [Recovering/Resolving]
